FAERS Safety Report 9648215 (Version 2)
Quarter: 2013Q4

REPORT INFORMATION
  Report Type: Report from Study
  Country: MX (occurrence: MX)
  Receive Date: 20131028
  Receipt Date: 20131205
  Transmission Date: 20140711
  Serious: Yes (Other)
  Sender: FDA-Public Use
  Company Number: PHHY2013MX119782

PATIENT
  Age: 62 Year
  Sex: Female

DRUGS (2)
  1. DIOVAN [Suspect]
     Indication: HYPERTENSION
     Dosage: 1 DF (80MG), DAILY
     Route: 048
     Dates: end: 201309
  2. CELEBREX [Concomitant]
     Indication: PAIN
     Dosage: 1 UKN, DAILY
     Dates: start: 201309

REACTIONS (6)
  - Fibromyalgia [Not Recovered/Not Resolved]
  - Bone fissure [Not Recovered/Not Resolved]
  - Blood pressure increased [Recovered/Resolved]
  - Drug resistance [Unknown]
  - Back pain [Recovered/Resolved]
  - Drug ineffective [Unknown]
